FAERS Safety Report 17717267 (Version 1)
Quarter: 2020Q2

REPORT INFORMATION
  Report Type: Spontaneous
  Country: US (occurrence: US)
  Receive Date: 20200428
  Receipt Date: 20200428
  Transmission Date: 20200714
  Serious: Yes (Other)
  Sender: FDA-Public Use
  Company Number: US-RECKITT BENCKISER HEALTHCARE INT LIMITED-RB-85837-2020

PATIENT
  Age: 67 Year
  Sex: Female

DRUGS (1)
  1. MUCINEX MAXIMUM STRENGTH [Suspect]
     Active Substance: GUAIFENESIN
     Indication: PRODUCT USED FOR UNKNOWN INDICATION
     Dosage: TOOK TWO 1200 MILLIGRAM TABLETS AT ONCE AT 12:00 AM THAN TOOK ANOTHER AT 12:00 PM
     Route: 048
     Dates: start: 20200421

REACTIONS (5)
  - Abdominal pain upper [Recovered/Resolved]
  - Oropharyngeal discomfort [Recovered/Resolved]
  - Accidental overdose [Recovered/Resolved]
  - Dry throat [Recovered/Resolved]
  - Abdominal discomfort [Recovered/Resolved]

NARRATIVE: CASE EVENT DATE: 20200421
